FAERS Safety Report 8822071 (Version 2)
Quarter: 2013Q1

REPORT INFORMATION
  Report Type: Report from Study
  Country: DE (occurrence: DE)
  Receive Date: 20121003
  Receipt Date: 20130110
  Transmission Date: 20140127
  Serious: Yes (Hospitalization)
  Sender: FDA-Public Use
  Company Number: DE-AMGEN-DEUCT2012061676

PATIENT
  Age: 58 Year
  Sex: Female
  Weight: 66 kg

DRUGS (4)
  1. ETANERCEPT [Suspect]
     Indication: PRODUCT USED FOR UNKNOWN INDICATION
     Dosage: 50 MG, QWK
     Dates: start: 20120326, end: 20120918
  2. DICLOFENAC [Concomitant]
     Indication: OSTEOARTHRITIS
     Dosage: UNK
     Route: 048
  3. BUDESONIDE [Concomitant]
     Indication: COLITIS
     Dosage: UNK
     Route: 048
     Dates: start: 201112, end: 201208
  4. OMEPRAZOL                          /00661201/ [Concomitant]
     Indication: PROPHYLAXIS AGAINST GASTROINTESTINAL ULCER
     Dosage: UNK
     Route: 048

REACTIONS (1)
  - Pyoderma gangrenosum [Recovering/Resolving]
